FAERS Safety Report 5271694-6 (Version None)
Quarter: 2007Q1

REPORT INFORMATION
  Report Type: 
  Country: None (occurrence: None)
  Receive Date: 20070321
  Receipt Date: 20070315
  Transmission Date: 20070707
  Serious: Yes (Hospitalization, Other)
  Sender: FDA-Public Use
  Company Number: US-PFIZER INC-2006099193

PATIENT
  Sex: Female
  Weight: 72.6 kg

DRUGS (2)
  1. BEXTRA [Suspect]
     Indication: ARTHRITIS
     Route: 065
  2. BEXTRA [Suspect]
     Indication: ARTHRALGIA

REACTIONS (1)
  - MYOCARDIAL INFARCTION [None]
